FAERS Safety Report 8612245-5 (Version None)
Quarter: 2012Q3

REPORT INFORMATION
  Report Type: 
  Country: None (occurrence: None)
  Receive Date: 20120822
  Receipt Date: 20120814
  Transmission Date: 20120928
  Serious: Yes (Other)
  Sender: FDA-Public Use
  Company Number: US-BAYER-2012-039230

PATIENT
  Age: 14 Year
  Sex: Female
  Weight: 81.633 kg

DRUGS (1)
  1. YAZ [Suspect]
     Indication: CONTRACEPTION
     Dosage: UNK
     Dates: start: 20080901, end: 20080901

REACTIONS (4)
  - GASTROINTESTINAL DISORDER [None]
  - GALLBLADDER DISORDER [None]
  - INJURY [None]
  - PAIN [None]
